FAERS Safety Report 9364140 (Version 1)
Quarter: 2013Q2

REPORT INFORMATION
  Report Type: Spontaneous
  Country: US (occurrence: None)
  Receive Date: 20130619
  Receipt Date: 20130619
  Transmission Date: 20140414
  Serious: Yes (Hospitalization)
  Sender: FDA-Public Use
  Company Number: US-000714

PATIENT
  Age: 63 Year
  Sex: Male

DRUGS (8)
  1. GATTEX [Suspect]
     Indication: SHORT-BOWEL SYNDROME
     Dosage: STREN/VOLUM: 0.3 ML | FREQU: DAILY SC
     Route: 058
     Dates: start: 201305
  2. LOMOTIL [Concomitant]
  3. SOLUTIONS FOR PARENTERAL NUTRITION [Concomitant]
  4. FLAGYL [Concomitant]
  5. VICODIN [Concomitant]
  6. EXCEDRIN [Concomitant]
  7. BENADRYL [Concomitant]
  8. LEVODOPA [Concomitant]

REACTIONS (3)
  - Swelling [None]
  - Drug dose omission [None]
  - Lung infection [None]
